FAERS Safety Report 15536259 (Version 1)
Quarter: 2018Q4

REPORT INFORMATION
  Report Type: Report from Study
  Country: US (occurrence: US)
  Receive Date: 20181022
  Receipt Date: 20181022
  Transmission Date: 20190205
  Serious: Yes (Other)
  Sender: FDA-Public Use
  Company Number: US-DOVA PHARMACEUTICALS INC.-DOV-000181

PATIENT
  Age: 66 Year
  Sex: Male

DRUGS (1)
  1. DOPTELET [Suspect]
     Active Substance: AVATROMBOPAG MALEATE
     Indication: THROMBOCYTOPENIA
     Dosage: 40 MG, QD
     Route: 048
     Dates: start: 20180928

REACTIONS (4)
  - Dizziness [Unknown]
  - Feeling abnormal [Unknown]
  - Loss of consciousness [Unknown]
  - Syncope [Unknown]

NARRATIVE: CASE EVENT DATE: 20180928
